FAERS Safety Report 25257914 (Version 1)
Quarter: 2025Q2

REPORT INFORMATION
  Report Type: Spontaneous
  Country: BY (occurrence: BY)
  Receive Date: 20250430
  Receipt Date: 20250430
  Transmission Date: 20250717
  Serious: Yes (Other)
  Sender: ABBVIE
  Company Number: BY-ABBVIE-6253366

PATIENT
  Age: 25 Year
  Sex: Male

DRUGS (1)
  1. SEVOFLURANE [Suspect]
     Active Substance: SEVOFLURANE
     Indication: Maintenance of anaesthesia
     Route: 007
     Dates: start: 20200314, end: 20200314

REACTIONS (7)
  - Blood creatine phosphokinase increased [Recovered/Resolved]
  - Hyperthermia malignant [Recovered/Resolved]
  - Metabolic acidosis [Recovered/Resolved]
  - Chromaturia [Recovered/Resolved]
  - End-tidal CO2 increased [Recovered/Resolved]
  - Body temperature increased [Recovered/Resolved]
  - Myoglobin blood increased [Recovered/Resolved]

NARRATIVE: CASE EVENT DATE: 20200314
